FAERS Safety Report 6166388-9 (Version None)
Quarter: 2009Q2

REPORT INFORMATION
  Report Type: 
  Country: None (occurrence: None)
  Receive Date: 20090422
  Receipt Date: 20090422
  Transmission Date: 20091009
  Serious: Yes (Other)
  Sender: FDA-Public Use
  Company Number: None

PATIENT
  Age: 39 Year
  Sex: Female
  Weight: 69.4003 kg

DRUGS (2)
  1. TAXOTERE [Suspect]
     Dosage: 125 QW IV
     Route: 042
     Dates: start: 20090421
  2. TAXOTERE [Suspect]

REACTIONS (3)
  - ERYTHEMA [None]
  - PRURITUS [None]
  - RASH [None]
